FAERS Safety Report 13307719 (Version 5)
Quarter: 2017Q3

REPORT INFORMATION
  Report Type: Report from Study
  Country: US (occurrence: US)
  Receive Date: 20170308
  Receipt Date: 20170718
  Transmission Date: 20171127
  Serious: Yes (Hospitalization)
  Sender: FDA-Public Use
  Company Number: US-ACTELION-A-NJ2017-150793

PATIENT
  Age: 73 Year
  Sex: Female
  Weight: 44.44 kg

DRUGS (3)
  1. SILDENAFIL CITRATE. [Concomitant]
     Active Substance: SILDENAFIL CITRATE
  2. VERAPAMIL [Concomitant]
     Active Substance: VERAPAMIL HYDROCHLORIDE
  3. OPSUMIT [Suspect]
     Active Substance: MACITENTAN
     Indication: PULMONARY ARTERIAL HYPERTENSION
     Dosage: 10 MG, QD
     Route: 048
     Dates: start: 2016

REACTIONS (7)
  - Chest pain [Unknown]
  - Loss of consciousness [Unknown]
  - Syncope [Unknown]
  - Pneumonia [Unknown]
  - Haemoptysis [Unknown]
  - Bronchitis [Unknown]
  - Myocardial infarction [Unknown]
